FAERS Safety Report 5146736-9 (Version None)
Quarter: 2006Q4

REPORT INFORMATION
  Report Type: 
  Country: None (occurrence: None)
  Receive Date: 20061107
  Receipt Date: 20061107
  Transmission Date: 20070319
  Serious: Yes (Other)
  Sender: FDA-Public Use
  Company Number: None

PATIENT
  Age: 85 Year
  Sex: Male
  Weight: 71.2 kg

DRUGS (12)
  1. MORPHINE [Suspect]
     Dosage: PCA PROTOCOL, 1MG/HR DEMAND/BOLUS INTRAVEN 1MG
     Route: 040
     Dates: start: 20060821, end: 20060823
  2. ACETAMINOPHEN [Concomitant]
  3. HYTRIN [Concomitant]
  4. LOVASTATIN [Concomitant]
  5. FINASTERIDE [Concomitant]
  6. ATENOLOL [Concomitant]
  7. SENNA [Concomitant]
  8. LOVENOX [Concomitant]
  9. DOCUSATE SODIUM (COLACE0 [Concomitant]
  10. METOCLOPRAMIDE HCL [Concomitant]
  11. DIPHENHYDRAMINE HCL [Concomitant]
  12. OXYCODONE/ACETAMINOPHEN [Concomitant]

REACTIONS (2)
  - MENTAL STATUS CHANGES [None]
  - SYNCOPE [None]
